FAERS Safety Report 23515290 (Version 1)
Quarter: 2024Q1

REPORT INFORMATION
  Report Type: Spontaneous
  Country: GB (occurrence: GB)
  Receive Date: 20240213
  Receipt Date: 20240213
  Transmission Date: 20240409
  Serious: Yes (Hospitalization, Other)
  Sender: FDA-Public Use
  Company Number: GB-HALEON-GBCH2024EME007397

PATIENT

DRUGS (2)
  1. IBUPROFEN [Suspect]
     Active Substance: IBUPROFEN
     Indication: Arthralgia
     Dosage: UNK
  2. CODEINE [Concomitant]
     Active Substance: CODEINE
     Indication: Arthralgia
     Dosage: UNK

REACTIONS (5)
  - Intestinal diaphragm disease [Recovered/Resolved]
  - Iron deficiency anaemia [Recovered/Resolved]
  - Abdominal pain [Recovered/Resolved]
  - Mucosal ulceration [Recovered/Resolved]
  - Fibrosis [Recovered/Resolved]
